FAERS Safety Report 17826274 (Version 4)
Quarter: 2020Q2

REPORT INFORMATION
  Report Type: Report from Study
  Country: US (occurrence: US)
  Receive Date: 20200526
  Receipt Date: 20200625
  Transmission Date: 20200714
  Serious: Yes (Death, Life-Threatening, Hospitalization)
  Sender: FDA-Public Use
  Company Number: US-SA-2020SA111365

PATIENT

DRUGS (8)
  1. ACETAMINOPHEN. [Concomitant]
     Active Substance: ACETAMINOPHEN
     Indication: PAIN
  2. VANCOMYCIN [Concomitant]
     Active Substance: VANCOMYCIN
     Indication: ANTIBIOTIC THERAPY
     Dosage: 15 MG/KG, CONT
     Route: 042
     Dates: start: 20200423, end: 20200425
  3. SARILUMAB [Suspect]
     Active Substance: SARILUMAB
     Indication: COVID-19
     Dosage: 400 MG, 1X
     Route: 042
     Dates: start: 20200421, end: 20200421
  4. ZITHROMAX [Concomitant]
     Active Substance: AZITHROMYCIN DIHYDRATE
     Dosage: 500 MG, QD
     Route: 048
     Dates: start: 20200419, end: 20200425
  5. ACETAMINOPHEN. [Concomitant]
     Active Substance: ACETAMINOPHEN
     Indication: PYREXIA
     Dosage: 650 MG, PRN (AS NECESSARY)
     Route: 048
     Dates: start: 20200420, end: 20200425
  6. ZOSYN [Concomitant]
     Active Substance: PIPERACILLIN SODIUM\TAZOBACTAM SODIUM
     Indication: ANTIBIOTIC THERAPY
     Dosage: 4.5 G, Q8H
     Route: 042
     Dates: start: 20200423, end: 20200425
  7. ZITHROMAX [Concomitant]
     Active Substance: AZITHROMYCIN DIHYDRATE
     Indication: ANTIBIOTIC THERAPY
     Dosage: 250 MG, QD
     Route: 048
     Dates: start: 20200309, end: 20200418
  8. ROCEPHIN [CEFTRIAXONE SODIUM] [Concomitant]
     Indication: ANTIBIOTIC THERAPY
     Dosage: 1 G, QD
     Route: 042
     Dates: start: 20200421, end: 20200425

REACTIONS (6)
  - Aspartate aminotransferase increased [Not Recovered/Not Resolved]
  - Alanine aminotransferase increased [Recovering/Resolving]
  - Intestinal ischaemia [Not Recovered/Not Resolved]
  - Pyrexia [Recovered/Resolved]
  - Multiple organ dysfunction syndrome [Fatal]
  - Hypotension [Not Recovered/Not Resolved]

NARRATIVE: CASE EVENT DATE: 20200423
